FAERS Safety Report 11189559 (Version 1)
Quarter: 2015Q2

REPORT INFORMATION
  Report Type: Spontaneous
  Country: US (occurrence: US)
  Receive Date: 20150615
  Receipt Date: 20150615
  Transmission Date: 20150821
  Serious: No
  Sender: FDA-Public Use
  Company Number: US-SHIRE-US201505872

PATIENT
  Sex: Male

DRUGS (2)
  1. PENTASA [Suspect]
     Active Substance: MESALAMINE
     Indication: GASTROINTESTINAL DISORDER
     Dosage: UNK, UNKNOWN
     Route: 048
  2. PENTASA [Suspect]
     Active Substance: MESALAMINE
     Indication: INTERNAL HAEMORRHAGE

REACTIONS (2)
  - Product use issue [Unknown]
  - No adverse event [Unknown]
